FAERS Safety Report 17801746 (Version 1)
Quarter: 2020Q2

REPORT INFORMATION
  Report Type: Spontaneous
  Country: US (occurrence: US)
  Receive Date: 20200518
  Receipt Date: 20200518
  Transmission Date: 20200714
  Serious: Yes (Other)
  Sender: FDA-Public Use
  Company Number: None

PATIENT
  Age: 84 Year
  Sex: Male
  Weight: 80 kg

DRUGS (3)
  1. REMDESIVIR. [Suspect]
     Active Substance: REMDESIVIR
     Dates: start: 20200512, end: 20200514
  2. VANCOMYCIN [Concomitant]
     Active Substance: VANCOMYCIN
  3. FUROSEMIDE. [Concomitant]
     Active Substance: FUROSEMIDE

REACTIONS (7)
  - Hypotension [None]
  - Respiratory failure [None]
  - White blood cell disorder [None]
  - Acute kidney injury [None]
  - Blood creatinine increased [None]
  - Urine output decreased [None]
  - Tachypnoea [None]

NARRATIVE: CASE EVENT DATE: 20200513
